FAERS Safety Report 5457290-6 (Version None)
Quarter: 2007Q3

REPORT INFORMATION
  Report Type: 
  Country: None (occurrence: None)
  Receive Date: 20070918
  Receipt Date: 20070702
  Transmission Date: 20080115
  Serious: Yes (Hospitalization)
  Sender: FDA-Public Use
  Company Number: US-ASTRAZENECA-2007UW01966

PATIENT
  Age: 24 Year
  Sex: Female
  Weight: 82.3 kg

DRUGS (69)
  1. SEROQUEL [Suspect]
     Indication: BIPOLAR DISORDER
     Dosage: 25 MG TO 300 MG
     Route: 048
     Dates: start: 20030325, end: 20060525
  2. SEROQUEL [Suspect]
     Indication: DEPRESSION
     Dosage: 25 MG TO 300 MG
     Route: 048
     Dates: start: 20030325, end: 20060525
  3. ABILIFY [Concomitant]
     Dates: start: 20040625, end: 20040917
  4. GEODON [Concomitant]
     Dates: start: 20050701
  5. RISPERDAL [Concomitant]
     Dates: start: 20031216, end: 20040226
  6. RISPERDAL [Concomitant]
     Dates: start: 20041005
  7. RISPERDAL [Concomitant]
     Dates: start: 20041101, end: 20050531
  8. ZYPREXA [Concomitant]
  9. DEPAKOTE [Concomitant]
  10. LUNESTA [Concomitant]
  11. PROCHLORPERAZINE [Concomitant]
  12. ZITHROMAX [Concomitant]
  13. FLUCONAZOLE [Concomitant]
  14. CIPROFLOXACIN [Concomitant]
  15. ALPRAZOLAM [Concomitant]
  16. CYMBALTA [Concomitant]
  17. ACETAMINOPHEN/COD [Concomitant]
  18. ACETAMINOPHEN AND HYDROCODONE BITARTRATE [Concomitant]
  19. MIRTAZAPINE [Concomitant]
  20. XANAX [Concomitant]
  21. PROPOXYPHENE NAPSYLATE AND ACETAMINOPHEN [Concomitant]
  22. PROMETHAZINE [Concomitant]
  23. INDOMETHACIN [Concomitant]
  24. OXYCODONE AND ACETAMINOPHEN [Concomitant]
  25. IBUPROFEN [Concomitant]
  26. CLINDAMYCIN HCL [Concomitant]
  27. BUTALBITAL ACETAMINOPHEN AND CAFFEINE [Concomitant]
  28. HYDROXYZINE [Concomitant]
  29. SINGULAIR [Concomitant]
  30. DIPHENOXYLATE HCL + ATROPINE SULFATE [Concomitant]
  31. FLUOXETINE [Concomitant]
  32. ERY-TAB [Concomitant]
  33. CLOTRIMAZOLE [Concomitant]
  34. AMITRIPTYLINE HCL [Concomitant]
  35. COMBIVENT [Concomitant]
  36. PROMETHEGAN [Concomitant]
  37. NAPROXEN [Concomitant]
  38. LINDANE [Concomitant]
  39. BIAXIN [Concomitant]
  40. GUAIFENESIN DM [Concomitant]
  41. CEPHALEXIN [Concomitant]
  42. METRONIDAZOLE [Concomitant]
  43. NECON [Concomitant]
  44. TRAMADOL HCL [Concomitant]
  45. SULFAMETHOXAZOLE AND TRIMETHOPRIM [Concomitant]
  46. TRAZODONE HCL [Concomitant]
  47. DURADRIN [Concomitant]
  48. TOPAMAX [Concomitant]
  49. RANITIDINE [Concomitant]
  50. AMIDRINE [Concomitant]
  51. PREDNISONE [Concomitant]
  52. DOXYCYCLINE [Concomitant]
  53. ANTIPYRINE/BENZOCAINE [Concomitant]
  54. ANTIBIOTIC EAR SUSPENSION [Concomitant]
  55. OMNICEF [Concomitant]
  56. TIZANIDINE HCL [Concomitant]
  57. FLOVENT HFA [Concomitant]
  58. AMBIEN [Concomitant]
  59. CARBOFED DM [Concomitant]
  60. ROZEREM [Concomitant]
  61. SULFAMETHOXAZOLE/T [Concomitant]
  62. DIPHENHYDRAMINE HCL [Concomitant]
  63. CEPHALEXIN [Concomitant]
  64. CIPROFLOXACIN [Concomitant]
  65. ABILIFY [Concomitant]
  66. AEROBID [Concomitant]
  67. FAMOTIDINE [Concomitant]
  68. BENZTROPINE MESYLATE [Concomitant]
  69. NICODERM [Concomitant]

REACTIONS (3)
  - OVERDOSE [None]
  - PANCREATITIS [None]
  - TYPE 2 DIABETES MELLITUS [None]
